FAERS Safety Report 8899437 (Version 2)
Quarter: 2012Q4

REPORT INFORMATION
  Report Type: Report from Study
  Country: US (occurrence: US)
  Receive Date: 20121109
  Receipt Date: 20121207
  Transmission Date: 20130627
  Serious: Yes (Hospitalization)
  Sender: FDA-Public Use
  Company Number: US-ROCHE-1143087

PATIENT
  Age: 76 Year
  Sex: Female
  Weight: 67.19 kg

DRUGS (7)
  1. CAPECITABINE [Suspect]
     Indication: COLON CANCER
     Route: 048
     Dates: start: 20120829
  2. CAPECITABINE [Suspect]
     Route: 048
     Dates: start: 20120911, end: 20120927
  3. MAGIC MOUTH WASH (INGREDIENTS UNK) [Concomitant]
     Dosage: 1 teaspoon
     Route: 065
     Dates: start: 20121001
  4. LOMOTIL [Concomitant]
     Route: 048
     Dates: start: 20120926, end: 20121003
  5. IMODIUM [Concomitant]
     Route: 048
     Dates: start: 20120926, end: 20121001
  6. AMBIEN [Concomitant]
     Route: 048
  7. COUMADIN [Concomitant]
     Route: 048

REACTIONS (16)
  - Malaise [Unknown]
  - Pain in extremity [Recovered/Resolved]
  - Oral mucosal blistering [Recovering/Resolving]
  - Diarrhoea [Recovered/Resolved]
  - Insomnia [Not Recovered/Not Resolved]
  - Abdominal pain [Recovered/Resolved]
  - Stomatitis [Recovered/Resolved]
  - Aphagia [Recovering/Resolving]
  - Fluid intake reduced [Recovering/Resolving]
  - Blister [Unknown]
  - Asthenia [Not Recovered/Not Resolved]
  - Skin fissures [Unknown]
  - Haemorrhage [Unknown]
  - Confusional state [Recovering/Resolving]
  - Ageusia [Unknown]
  - Dehydration [Unknown]
